FAERS Safety Report 5359461-6 (Version None)
Quarter: 2007Q2

REPORT INFORMATION
  Report Type: 
  Country: None (occurrence: None)
  Receive Date: 20070615
  Receipt Date: 20070607
  Transmission Date: 20071010
  Serious: Yes (Other)
  Sender: FDA-Public Use
  Company Number: ES-PFIZER INC-2007044797

PATIENT
  Age: 36 Year
  Sex: Female

DRUGS (3)
  1. CHAMPIX [Suspect]
     Indication: SMOKING CESSATION THERAPY
     Route: 048
     Dates: start: 20070501, end: 20070501
  2. HALAZEPAM [Concomitant]
     Route: 048
  3. FLUOXETINE [Concomitant]
     Route: 048

REACTIONS (1)
  - RECTAL HAEMORRHAGE [None]
